FAERS Safety Report 12094086 (Version 1)
Quarter: 2016Q1

REPORT INFORMATION
  Report Type: Spontaneous
  Country: FR (occurrence: FR)
  Receive Date: 20160219
  Receipt Date: 20160219
  Transmission Date: 20160526
  Serious: Yes (Death)
  Sender: FDA-Public Use
  Company Number: FR-PFIZER INC-2014131486

PATIENT
  Age: 65 Year
  Sex: Female

DRUGS (9)
  1. TAZOCILLINE [Suspect]
     Active Substance: PIPERACILLIN SODIUM\TAZOBACTAM SODIUM
     Indication: FEBRILE BONE MARROW APLASIA
     Dosage: UNK
     Route: 042
     Dates: start: 20140305, end: 20140308
  2. TAZOCILLINE [Suspect]
     Active Substance: PIPERACILLIN SODIUM\TAZOBACTAM SODIUM
     Dosage: UNK
     Route: 042
     Dates: start: 20140420
  3. DOCETAXEL ACCORD [Suspect]
     Active Substance: DOCETAXEL
     Indication: BREAST CANCER
     Dosage: THIRD COURSE
     Route: 042
     Dates: start: 20140227
  4. GENTAMICIN. [Suspect]
     Active Substance: GENTAMICIN
     Indication: FEBRILE BONE MARROW APLASIA
     Dosage: UNK
     Route: 042
     Dates: start: 20140305, end: 20140308
  5. ENDOXAN [Suspect]
     Active Substance: CYCLOPHOSPHAMIDE
     Dosage: SECOND COURSE
     Route: 042
     Dates: start: 20140206
  6. ENDOXAN [Suspect]
     Active Substance: CYCLOPHOSPHAMIDE
     Dosage: THIRD COURSE
     Route: 042
     Dates: start: 20140227
  7. AUGMENTIN [Suspect]
     Active Substance: AMOXICILLIN\CLAVULANATE POTASSIUM
     Indication: FEBRILE BONE MARROW APLASIA
     Dosage: UNK
     Route: 042
     Dates: start: 20140303, end: 20140304
  8. ENDOXAN [Suspect]
     Active Substance: CYCLOPHOSPHAMIDE
     Indication: BREAST CANCER
     Dosage: FIRST COURSE
     Route: 042
     Dates: start: 20140116
  9. OFLOCET [Suspect]
     Active Substance: OFLOXACIN
     Indication: FEBRILE BONE MARROW APLASIA
     Dosage: UNK
     Route: 042
     Dates: start: 20140303, end: 20140304

REACTIONS (1)
  - Toxic epidermal necrolysis [Fatal]

NARRATIVE: CASE EVENT DATE: 20140306
